FAERS Safety Report 7307382-1 (Version None)
Quarter: 2011Q1

REPORT INFORMATION
  Report Type: 
  Country: None (occurrence: None)
  Receive Date: 20110223
  Receipt Date: 20110209
  Transmission Date: 20110831
  Serious: Yes (Disabling, Other)
  Sender: FDA-Public Use
  Company Number: IE-ENDO PHARMACEUTICALS INC.-VANT20110003

PATIENT
  Sex: Male
  Weight: 76 kg

DRUGS (3)
  1. IBUPROFEN [Concomitant]
     Indication: PAIN
     Dosage: UNK
     Route: 048
  2. VANTAS [Suspect]
     Indication: PROSTATE CANCER
     Route: 058
     Dates: start: 20101217, end: 20110113
  3. LIPITOR [Concomitant]
     Dosage: UNK

REACTIONS (4)
  - FATIGUE [None]
  - MYOPATHY [None]
  - OEDEMA PERIPHERAL [None]
  - ARTHRALGIA [None]
